FAERS Safety Report 8915258 (Version 6)
Quarter: 2013Q4

REPORT INFORMATION
  Report Type: Spontaneous
  Country: GB (occurrence: GB)
  Receive Date: 20121119
  Receipt Date: 20131003
  Transmission Date: 20140711
  Serious: Yes (Life-Threatening, Other)
  Sender: FDA-Public Use
  Company Number: GB-PFIZER INC-GBWYE948804AUG04

PATIENT
  Age: 77 Year
  Sex: Female

DRUGS (6)
  1. IBUPROFEN [Suspect]
     Indication: NECK PAIN
     Dosage: 400 MG, 3X/DAY AS NEEDED
     Route: 048
     Dates: start: 1990
  2. BECLOMETASONE DIPROPIONATE [Concomitant]
     Indication: ASTHMA
     Dosage: 4 UG, 2X/DAY
     Route: 055
  3. BENDROFLUMETHIAZIDE [Concomitant]
     Indication: BLOOD PRESSURE INCREASED
     Dosage: 3 MG, 1X/DAY
     Route: 048
  4. DOXAZOSIN [Concomitant]
     Indication: BLOOD PRESSURE INCREASED
     Dosage: 8 MG, 1X/DAY
     Route: 048
  5. LOSARTAN [Concomitant]
     Indication: BLOOD PRESSURE INCREASED
     Dosage: 50 MG, 2X/DAY
     Route: 048
  6. SALBUTAMOL [Concomitant]
     Indication: ASTHMA
     Dosage: 1 DF, AS NEEDED
     Route: 055

REACTIONS (1)
  - Peptic ulcer perforation [Recovering/Resolving]
